FAERS Safety Report 20186697 (Version 1)
Quarter: 2021Q4

REPORT INFORMATION
  Report Type: Spontaneous
  Country: DE (occurrence: DE)
  Receive Date: 20211215
  Receipt Date: 20211215
  Transmission Date: 20220304
  Serious: Yes (Other)
  Sender: FDA-Public Use
  Company Number: DE-BAYER-2021A265954

PATIENT
  Sex: Male

DRUGS (4)
  1. VITRAKVI [Suspect]
     Active Substance: LAROTRECTINIB
     Indication: Glioblastoma
     Dosage: 5 ML, BID
     Route: 048
     Dates: start: 20191220, end: 202006
  2. VITRAKVI [Suspect]
     Active Substance: LAROTRECTINIB
     Indication: Glioblastoma
     Dosage: 3 ML, BID
     Route: 048
     Dates: start: 202006, end: 202110
  3. VITRAKVI [Suspect]
     Active Substance: LAROTRECTINIB
     Indication: Glioblastoma
     Dosage: 5 ML, QD
     Route: 048
     Dates: start: 202110, end: 202112
  4. VITRAKVI [Suspect]
     Active Substance: LAROTRECTINIB
     Indication: Glioblastoma
     Dosage: 5 ML, BID
     Route: 048
     Dates: start: 202112

REACTIONS (4)
  - Glioblastoma [Not Recovered/Not Resolved]
  - Paraesthesia [Recovered/Resolved]
  - Dizziness [Recovering/Resolving]
  - Dizziness [None]

NARRATIVE: CASE EVENT DATE: 20191201
